FAERS Safety Report 17582342 (Version 2)
Quarter: 2020Q3

REPORT INFORMATION
  Report Type: Spontaneous
  Country: US (occurrence: US)
  Receive Date: 20200325
  Receipt Date: 20200729
  Transmission Date: 20201102
  Serious: No
  Sender: FDA-Public Use
  Company Number: US-BIOMARINAP-US-2020-127782

PATIENT
  Age: 21 Year
  Sex: Male

DRUGS (1)
  1. KUVAN [Suspect]
     Active Substance: SAPROPTERIN DIHYDROCHLORIDE
     Dosage: 20 MILLIGRAM/KILOGRAM
     Route: 065
     Dates: start: 20190801

REACTIONS (1)
  - Therapy non-responder [Unknown]
